FAERS Safety Report 4493425-X (Version None)
Quarter: 2004Q4

REPORT INFORMATION
  Report Type: 
  Country: None (occurrence: None)
  Receive Date: 20041102
  Receipt Date: 20041022
  Transmission Date: 20050328
  Serious: Yes (Hospitalization)
  Sender: FDA-Public Use
  Company Number: 2004081925

PATIENT
  Age: 37 Year
  Sex: Male
  Weight: 7.2576 kg

DRUGS (5)
  1. BENADRYL [Suspect]
     Indication: HYPERSENSITIVITY
     Dosage: 1-2 TABLETS A DAY EVERY 6 HRS, ORAL
     Route: 048
  2. VISINE II EYE DROPS [Suspect]
     Dosage: OPHTHALMIC
     Route: 047
  3. MOMETASONE FUROATE [Concomitant]
  4. CARBAMAZEPINE [Concomitant]
  5. PENCILLIN NOS (PENCILLIN NOS) [Concomitant]

REACTIONS (2)
  - DRUG INEFFECTIVE [None]
  - GRAND MAL CONVULSION [None]
